FAERS Safety Report 4965840-9 (Version None)
Quarter: 2006Q2

REPORT INFORMATION
  Report Type: 
  Country: None (occurrence: None)
  Receive Date: 20060407
  Receipt Date: 20060323
  Transmission Date: 20061013
  Serious: Yes (Hospitalization)
  Sender: FDA-Public Use
  Company Number: GBWYE507024MAR06

PATIENT
  Sex: Female

DRUGS (5)
  1. ENBREL [Suspect]
     Indication: RHEUMATOID ARTHRITIS
     Dosage: UNKNOWN
     Dates: start: 20050301, end: 20060301
  2. PREDNISOLONE [Concomitant]
     Dosage: UNKNOWN
  3. OMEPRAZOLE [Concomitant]
     Dosage: UNKNOWN
  4. BENDROFLUMETHIAZIDE [Concomitant]
     Dosage: UNKNOWN
  5. SOLPADOL [Concomitant]
     Dosage: UNKNOWN

REACTIONS (8)
  - ABDOMINAL PAIN [None]
  - ASPARTATE AMINOTRANSFERASE INCREASED [None]
  - BACTERIAL SEPSIS [None]
  - BLOOD BILIRUBIN INCREASED [None]
  - GAMMA-GLUTAMYLTRANSFERASE INCREASED [None]
  - LIVER FUNCTION TEST ABNORMAL [None]
  - PLATELET COUNT DECREASED [None]
  - PNEUMONIA [None]
